FAERS Safety Report 13938981 (Version 3)
Quarter: 2019Q4

REPORT INFORMATION
  Report Type: Spontaneous
  Country: US (occurrence: US)
  Receive Date: 20170906
  Receipt Date: 20191019
  Transmission Date: 20200122
  Serious: Yes (Other)
  Sender: FDA-Public Use
  Company Number: US-TEVA-714301USA

PATIENT
  Age: 31 Year
  Sex: Female
  Weight: 69.92 kg

DRUGS (1)
  1. LABETALOL HCL [Suspect]
     Active Substance: LABETALOL HYDROCHLORIDE
     Indication: HYPERTENSIVE CRISIS
     Route: 065
     Dates: start: 20161029, end: 20161101

REACTIONS (3)
  - Live birth [Unknown]
  - Maternal exposure during pregnancy [Unknown]
  - Drug screen false positive [Unknown]

NARRATIVE: CASE EVENT DATE: 2016
